FAERS Safety Report 14726620 (Version 1)
Quarter: 2018Q2

REPORT INFORMATION
  Report Type: Spontaneous
  Country: US (occurrence: US)
  Receive Date: 20180406
  Receipt Date: 20180406
  Transmission Date: 20180711
  Serious: Yes (Death, Other)
  Sender: FDA-Public Use
  Company Number: US-CIPLA LTD.-2016US13950

PATIENT

DRUGS (4)
  1. GEMCITABINE [Suspect]
     Active Substance: GEMCITABINE\GEMCITABINE HYDROCHLORIDE
     Indication: PANCREATIC CARCINOMA METASTATIC
     Dosage: GEMCITABINE 750MG/M2 IV D1,8,15-28D/CYC, SUNITINIB 37,5MG ORALLY 4 WEEKS ON FOLLOWED BY 2 WEEKS OFF
     Route: 042
  2. SUNITINIB [Suspect]
     Active Substance: SUNITINIB
     Indication: RENAL CELL CARCINOMA
  3. GEMCITABINE [Suspect]
     Active Substance: GEMCITABINE\GEMCITABINE HYDROCHLORIDE
     Indication: RENAL CELL CARCINOMA
     Dosage: 700 MG/M2, UNK
     Route: 042
  4. SUNITINIB [Suspect]
     Active Substance: SUNITINIB
     Indication: PANCREATIC CARCINOMA METASTATIC
     Dosage: 37.5 MG, (FOUR WEEKS ON FOLLOWED BY TWO WEEKS OFF)
     Route: 048

REACTIONS (8)
  - Device dislocation [Unknown]
  - Pancreatic carcinoma metastatic [Fatal]
  - Renal cell carcinoma [Fatal]
  - Metastases to liver [Unknown]
  - Tumour invasion [Unknown]
  - Performance status decreased [Unknown]
  - Hyperbilirubinaemia [Unknown]
  - Neutropenia [Unknown]
